FAERS Safety Report 12238609 (Version 1)
Quarter: 2016Q2

REPORT INFORMATION
  Report Type: Spontaneous
  Country: US (occurrence: None)
  Receive Date: 20160404
  Receipt Date: 20160404
  Transmission Date: 20160815
  Serious: Yes (Other)
  Sender: FDA-Public Use
  Company Number: None

PATIENT
  Age: 60 Year
  Weight: 84.37 kg

DRUGS (1)
  1. REPATHA [Suspect]
     Active Substance: EVOLOCUMAB
     Indication: HYPERLIPIDAEMIA
     Dosage: 120 MG EVERY 2 WEEKS SUBCUTANEOUS
     Route: 058
     Dates: start: 20160318

REACTIONS (3)
  - Arthralgia [None]
  - Tenosynovitis [None]
  - Muscle rupture [None]

NARRATIVE: CASE EVENT DATE: 20160402
